FAERS Safety Report 17251546 (Version 1)
Quarter: 2020Q1

REPORT INFORMATION
  Report Type: Spontaneous
  Country: CN (occurrence: CN)
  Receive Date: 20200109
  Receipt Date: 20200109
  Transmission Date: 20200409
  Serious: Yes (Other)
  Sender: FDA-Public Use
  Company Number: CN-PFIZER INC-2020007367

PATIENT
  Age: 83 Year
  Sex: Female
  Weight: 42 kg

DRUGS (1)
  1. LIPITOR [Suspect]
     Active Substance: ATORVASTATIN CALCIUM
     Indication: CEREBRAL INFARCTION
     Dosage: 20 MG, 1X/DAY
     Route: 048
     Dates: start: 20191209, end: 20191218

REACTIONS (1)
  - Myocardial necrosis marker increased [Unknown]

NARRATIVE: CASE EVENT DATE: 20191217
